FAERS Safety Report 10407517 (Version 3)
Quarter: 2014Q4

REPORT INFORMATION
  Report Type: Spontaneous
  Country: US (occurrence: US)
  Receive Date: 20140825
  Receipt Date: 20141010
  Transmission Date: 20150528
  Serious: Yes (Disabling, Other)
  Sender: FDA-Public Use
  Company Number: US-PFIZER INC-2014234082

PATIENT
  Age: 39 Year
  Sex: Female

DRUGS (1)
  1. LIPITOR [Suspect]
     Active Substance: ATORVASTATIN CALCIUM
     Indication: BLOOD CHOLESTEROL INCREASED
     Dosage: UNK, AS DIRECTED
     Route: 048
     Dates: start: 1997, end: 2002

REACTIONS (3)
  - Type 2 diabetes mellitus [Not Recovered/Not Resolved]
  - Emotional distress [Not Recovered/Not Resolved]
  - Diabetic foot [Not Recovered/Not Resolved]

NARRATIVE: CASE EVENT DATE: 2003
